FAERS Safety Report 5926767-9 (Version None)
Quarter: 2008Q4

REPORT INFORMATION
  Report Type: 
  Country: None (occurrence: None)
  Receive Date: 20081017
  Receipt Date: 20080910
  Transmission Date: 20090506
  Serious: Yes (Hospitalization)
  Sender: FDA-Public Use
  Company Number: 1000001339

PATIENT
  Age: 59 Year
  Sex: Female

DRUGS (6)
  1. CITALOPRAM HYDROBROMIDE [Suspect]
     Dosage: 20 MG (20 MG, 1 IN 1 D), ORAL
     Route: 048
  2. CLOZARIL [Suspect]
     Indication: SCHIZOPHRENIA
     Dosage: 75 MG (75 MG, 1 IN 1 D), ORAL
     Route: 048
     Dates: start: 20080601, end: 20080701
  3. SEROQUEL [Suspect]
     Dosage: 400 MG (400 MG, 1 IN 1 D)
  4. METOPROLOL (50 MILLIGRAM) [Suspect]
     Dosage: 50 MG (50 MG, 1 IN 1 D)
  5. RAMIPRIL [Suspect]
  6. AMANTADINE HCL [Suspect]
     Dosage: 300 MG (100 MG, 3 IN 1 D)

REACTIONS (3)
  - DYSPHAGIA [None]
  - DYSPNOEA [None]
  - MYOCLONUS [None]
